FAERS Safety Report 10153246 (Version 2)
Quarter: 2014Q2

REPORT INFORMATION
  Report Type: Spontaneous
  Country: CA (occurrence: CA)
  Receive Date: 20140505
  Receipt Date: 20140623
  Transmission Date: 20141212
  Serious: Yes (Other)
  Sender: FDA-Public Use
  Company Number: CHPA2014CA006049

PATIENT
  Sex: Female

DRUGS (2)
  1. KERI FAST ABSORBING SOFTLY SCENTED [Suspect]
     Indication: DIABETIC FOOT
     Route: 061
  2. KERI FAST ABSORBING SOFTLY SCENTED [Suspect]
     Indication: OFF LABEL USE

REACTIONS (3)
  - Diabetes mellitus [Unknown]
  - Product quality issue [None]
  - Device malfunction [None]
